FAERS Safety Report 4728799-5 (Version None)
Quarter: 2005Q3

REPORT INFORMATION
  Report Type: 
  Country: None (occurrence: None)
  Receive Date: 20050721
  Receipt Date: 20050527
  Transmission Date: 20060218
  Serious: No
  Sender: FDA-Public Use
  Company Number: 2005SP001061

PATIENT
  Age: 83 Year
  Sex: Female
  Weight: 56.246 kg

DRUGS (8)
  1. LUNESTA [Suspect]
     Indication: INSOMNIA
     Dosage: SEE IMAGE
     Route: 048
     Dates: start: 20050501, end: 20050501
  2. LUNESTA [Suspect]
     Indication: INSOMNIA
     Dosage: SEE IMAGE
     Route: 048
     Dates: start: 20050501, end: 20050501
  3. TENORMIN [Concomitant]
  4. SYNTHROID [Concomitant]
  5. RESTORIL [Concomitant]
  6. AMBIEN [Concomitant]
  7. ATIVAN [Concomitant]
  8. RESTORIL [Concomitant]

REACTIONS (2)
  - DRUG INEFFECTIVE [None]
  - INSOMNIA [None]
